FAERS Safety Report 7063083-9 (Version None)
Quarter: 2010Q4

REPORT INFORMATION
  Report Type: 
  Country: None (occurrence: None)
  Receive Date: 20101026
  Receipt Date: 20100422
  Transmission Date: 20110411
  Serious: No
  Sender: FDA-Public Use
  Company Number: US-PFIZER INC-2010051674

PATIENT
  Sex: Female
  Weight: 66.213 kg

DRUGS (6)
  1. LIPITOR [Suspect]
     Indication: BLOOD CHOLESTEROL INCREASED
     Dosage: 10 MG, DAILY
     Route: 048
     Dates: start: 20100421
  2. METOPROLOL [Concomitant]
     Indication: BLOOD PRESSURE INCREASED
     Dosage: 50 MG, 1X/DAY
     Route: 048
  3. HYDROCHLOROTHIAZIDE [Concomitant]
     Indication: FLUID RETENTION
     Dosage: 25 MG, ONCE IN TWO DAYS
     Route: 048
  4. COZAAR [Concomitant]
     Dosage: 50 MG, 2X/DAY
     Route: 048
  5. ACETYLSALICYLIC ACID [Concomitant]
     Dosage: 81 MG, 1X/DAY
     Route: 048
  6. VITAMINS [Concomitant]
     Dosage: UNK

REACTIONS (2)
  - LIMB DISCOMFORT [None]
  - OEDEMA PERIPHERAL [None]
